FAERS Safety Report 7595752-6 (Version None)
Quarter: 2011Q3

REPORT INFORMATION
  Report Type: 
  Country: None (occurrence: None)
  Receive Date: 20110707
  Receipt Date: 20110705
  Transmission Date: 20111222
  Serious: Yes (Hospitalization, Congenital Anomaly, Other)
  Sender: FDA-Public Use
  Company Number: US-PFIZER INC-2008050012

PATIENT
  Sex: Male
  Weight: 3 kg

DRUGS (3)
  1. PRENATAL VITAMINS [Concomitant]
     Dosage: UNK
  2. ZOLOFT [Suspect]
     Dosage: UNK
     Route: 064
     Dates: start: 20000214
  3. DULCOLAX [Concomitant]
     Dosage: UNK

REACTIONS (21)
  - SPEECH DISORDER [None]
  - BRONCHIOLITIS [None]
  - SINUSITIS [None]
  - CLOSTRIDIAL INFECTION [None]
  - ECZEMA [None]
  - FALLOT'S TETRALOGY [None]
  - OTITIS MEDIA [None]
  - HAEMATOCHEZIA [None]
  - GASTROINTESTINAL MALFORMATION [None]
  - CARDIAC ARREST [None]
  - TRICUSPID VALVE INCOMPETENCE [None]
  - PULMONARY VALVE INCOMPETENCE [None]
  - ASTHMA [None]
  - MATERNAL EXPOSURE DURING PREGNANCY [None]
  - RESPIRATORY TRACT INFECTION [None]
  - MITRAL VALVE INCOMPETENCE [None]
  - DENTAL CARIES [None]
  - CONGENITAL OESOPHAGEAL WEB [None]
  - HYPOKINESIA [None]
  - JAUNDICE [None]
  - BRAIN STEM GLIOMA [None]
